FAERS Safety Report 14593447 (Version 2)
Quarter: 2018Q1

REPORT INFORMATION
  Report Type: Spontaneous
  Country: TW (occurrence: TW)
  Receive Date: 20180302
  Receipt Date: 20180309
  Transmission Date: 20180509
  Serious: Yes (Other)
  Sender: FDA-Public Use
  Company Number: TW-REGENERON PHARMACEUTICALS, INC.-2018-16586

PATIENT

DRUGS (2)
  1. EYLEA [Suspect]
     Active Substance: AFLIBERCEPT
     Indication: NEOVASCULAR AGE-RELATED MACULAR DEGENERATION
     Dosage: LEFT EYE, LAST DOSE PRIOR EVENT WAS 03-JAN-2018
     Dates: start: 20171206
  2. EYLEA [Suspect]
     Active Substance: AFLIBERCEPT
     Dosage: LEFT EYE, LAST DOSE PRIOR EVENT
     Dates: start: 20180103, end: 20180103

REACTIONS (2)
  - Retinal haemorrhage [Unknown]
  - Platelet count decreased [Unknown]

NARRATIVE: CASE EVENT DATE: 20180207
